FAERS Safety Report 24279790 (Version 1)
Quarter: 2024Q3

REPORT INFORMATION
  Report Type: Spontaneous
  Country: GB (occurrence: GB)
  Receive Date: 20240904
  Receipt Date: 20240904
  Transmission Date: 20241017
  Serious: Yes (Death)
  Sender: ROCHE
  Company Number: GB-002147023-NVSC2024GB173748

PATIENT
  Sex: Male

DRUGS (1)
  1. XOLAIR [Suspect]
     Active Substance: OMALIZUMAB
     Indication: Product used for unknown indication
     Dosage: 480 MG, 28D (XOLAIR 150MG/ML PFS 1) (ROA: INJECTION)
     Route: 065

REACTIONS (1)
  - Death [Fatal]
